FAERS Safety Report 7617826-3 (Version None)
Quarter: 2011Q3

REPORT INFORMATION
  Report Type: 
  Country: None (occurrence: None)
  Receive Date: 20110718
  Receipt Date: 20110705
  Transmission Date: 20111222
  Serious: Yes (Hospitalization, Other)
  Sender: FDA-Public Use
  Company Number: US-BAYER-2011-034121

PATIENT
  Age: 40 Year
  Sex: Female
  Weight: 74.376 kg

DRUGS (6)
  1. YASMIN [Suspect]
     Indication: CONTRACEPTION
     Dosage: UNK
     Dates: start: 20031201, end: 20051201
  2. DROSPIRENONE AND ETHINYL ESTRADIOL [Suspect]
     Indication: MENORRHAGIA
  3. CARTIA XT [Concomitant]
     Indication: BLOOD PRESSURE ABNORMAL
     Dosage: UNK
     Dates: start: 20090301
  4. DROSPIRENONE AND ETHINYL ESTRADIOL [Suspect]
     Indication: CONTRACEPTION
     Dosage: UNK
     Dates: start: 20090311, end: 20090428
  5. AVALIDE [Concomitant]
     Indication: BLOOD PRESSURE ABNORMAL
     Dosage: UNK UNK, QD
     Dates: start: 20040101, end: 20090101
  6. YASMIN [Suspect]
     Indication: MENORRHAGIA
     Dosage: UNK
     Dates: start: 20060501, end: 20070101

REACTIONS (8)
  - DYSPNOEA [None]
  - FEAR OF DEATH [None]
  - PULMONARY EMBOLISM [None]
  - HEART RATE INCREASED [None]
  - DEEP VEIN THROMBOSIS [None]
  - DYSFUNCTIONAL UTERINE BLEEDING [None]
  - HYPERHIDROSIS [None]
  - PAIN IN EXTREMITY [None]
